FAERS Safety Report 23665442 (Version 2)
Quarter: 2024Q4

REPORT INFORMATION
  Report Type: Spontaneous
  Country: NO (occurrence: NO)
  Receive Date: 20240323
  Receipt Date: 20241029
  Transmission Date: 20250114
  Serious: Yes (Hospitalization)
  Sender: ABBVIE
  Company Number: NO-TILLOTTSAB-20240123

PATIENT
  Age: 51 Year
  Sex: Female

DRUGS (4)
  1. ASACOL [Suspect]
     Active Substance: MESALAMINE
     Indication: Colitis ulcerative
     Dosage: SRENGHTH:1600 MG
     Route: 048
     Dates: start: 20201218, end: 202104
  2. HYRIMOZ [Concomitant]
     Active Substance: ADALIMUMAB-ADAZ
     Indication: Drug ineffective
     Route: 065
     Dates: start: 202102, end: 202208
  3. IMRALDI [Concomitant]
     Active Substance: ADALIMUMAB
     Indication: Drug ineffective
     Route: 065
     Dates: start: 202102, end: 202208
  4. PREDNISOLONE [Concomitant]
     Active Substance: PREDNISOLONE
     Indication: Product used for unknown indication
     Route: 065
     Dates: end: 202108

REACTIONS (1)
  - Interstitial lung disease [Recovered/Resolved with Sequelae]

NARRATIVE: CASE EVENT DATE: 20210406
